FAERS Safety Report 7780034-X (Version None)
Quarter: 2011Q3

REPORT INFORMATION
  Report Type: 
  Country: None (occurrence: None)
  Receive Date: 20110927
  Receipt Date: 20110923
  Transmission Date: 20111222
  Serious: Yes (Hospitalization)
  Sender: FDA-Public Use
  Company Number: US-BRISTOL-MYERS SQUIBB COMPANY-15389703

PATIENT
  Age: 51 Year
  Sex: Male

DRUGS (4)
  1. CETUXIMAB [Suspect]
     Indication: NEOPLASM
     Route: 042
     Dates: start: 20101115, end: 20101101
  2. LYRICA [Concomitant]
     Dates: start: 20100710
  3. FENTANYL [Concomitant]
     Dates: start: 20101104
  4. DILAUDID [Concomitant]
     Dates: start: 20101007

REACTIONS (1)
  - CYTOKINE RELEASE SYNDROME [None]
